FAERS Safety Report 15630078 (Version 1)
Quarter: 2018Q4

REPORT INFORMATION
  Report Type: Spontaneous
  Country: US (occurrence: US)
  Receive Date: 20181118
  Receipt Date: 20181118
  Transmission Date: 20190205
  Serious: No
  Sender: FDA-Public Use
  Company Number: US-JNJFOC-20181028742

PATIENT
  Age: 49 Year
  Sex: Female
  Weight: 69.85 kg

DRUGS (4)
  1. TYLENOL EXTRA STRENGTH [Suspect]
     Active Substance: ACETAMINOPHEN
     Indication: PAIN
     Dosage: 1-2 TABLETS
     Route: 048
     Dates: start: 20180820
  2. TYLENOL EXTRA STRENGTH [Suspect]
     Active Substance: ACETAMINOPHEN
     Indication: TEMPOROMANDIBULAR JOINT SYNDROME
     Dosage: 1-2 TABLETS
     Route: 048
     Dates: start: 20180820
  3. TYLENOL EXTRA STRENGTH [Suspect]
     Active Substance: ACETAMINOPHEN
     Indication: NECK PAIN
     Dosage: 1-2 TABLETS
     Route: 048
     Dates: start: 20180820
  4. TYLENOL EXTRA STRENGTH [Suspect]
     Active Substance: ACETAMINOPHEN
     Indication: BACK PAIN
     Dosage: 1-2 TABLETS
     Route: 048
     Dates: start: 20180820

REACTIONS (2)
  - Incorrect dose administered [Unknown]
  - Drug ineffective [Unknown]

NARRATIVE: CASE EVENT DATE: 20180820
